FAERS Safety Report 21397302 (Version 1)
Quarter: 2022Q3

REPORT INFORMATION
  Report Type: Spontaneous
  Country: US (occurrence: None)
  Receive Date: 20220929
  Receipt Date: 20220929
  Transmission Date: 20221026
  Serious: Yes (Hospitalization)
  Sender: FDA-Public Use
  Company Number: None

PATIENT
  Age: 65 Year
  Sex: Female

DRUGS (1)
  1. AMBRISENTAN [Suspect]
     Active Substance: AMBRISENTAN
     Indication: Pulmonary arterial hypertension
     Dosage: FREQUENCY : DAILY;?
     Route: 048
     Dates: start: 20220203

REACTIONS (5)
  - Leukocytosis [None]
  - Pelvic organ prolapse [None]
  - Cystocele [None]
  - Sepsis [None]
  - Pyelonephritis [None]

NARRATIVE: CASE EVENT DATE: 20220916
